FAERS Safety Report 8844189 (Version 1)
Quarter: 2012Q4

REPORT INFORMATION
  Report Type: 
  Country: CO (occurrence: CO)
  Receive Date: 20121016
  Receipt Date: 20121016
  Transmission Date: 20130627
  Serious: Yes (Hospitalization)
  Sender: FDA-Public Use
  Company Number: CO-PFIZER INC-2012253447

PATIENT
  Age: 5 Year
  Sex: Female

DRUGS (5)
  1. GENOTROPIN [Suspect]
     Indication: GROWTH HORMONE DEFICIENCY
     Dosage: 0.5 mg, 1x/day
     Route: 058
     Dates: start: 2009
  2. DESMOPRESSIN [Concomitant]
     Indication: DIABETES INSIPIDUS
     Dosage: 1 puff every 24 hours
     Route: 055
     Dates: start: 200806
  3. LEVOTHYROXINE [Concomitant]
     Indication: HYPOTHYROIDISM
     Dosage: at half a tablet of 50 mg in fasting
     Route: 065
     Dates: start: 201202
  4. AMOXICILLIN [Concomitant]
     Indication: SINUSITIS
     Dosage: 250 mg, UNK
     Route: 048
     Dates: start: 20120929
  5. AMOXICILLIN [Concomitant]
     Indication: PYREXIA

REACTIONS (2)
  - Gastroenteritis viral [Recovered/Resolved]
  - Diarrhoea [Recovered/Resolved]
